FAERS Safety Report 16886686 (Version 1)
Quarter: 2020Q3

REPORT INFORMATION
  Report Type: Spontaneous
  Country: US (occurrence: US)
  Receive Date: 20191004
  Receipt Date: 20191004
  Transmission Date: 20201104
  Serious: Yes (Other)
  Sender: FDA-Public Use
  Company Number: US-ASTRAZENECA-2019SF00557

PATIENT
  Age: 68 Year
  Sex: Male

DRUGS (2)
  1. DURVALUMAB. [Suspect]
     Active Substance: DURVALUMAB
     Indication: PLEOMORPHIC LIPOSARCOMA
     Route: 042
  2. TREMELIMUMAB. [Suspect]
     Active Substance: TREMELIMUMAB
     Indication: PLEOMORPHIC LIPOSARCOMA
     Route: 042

REACTIONS (7)
  - Blood creatine phosphokinase increased [Unknown]
  - Myositis [Unknown]
  - Hypokinesia [Unknown]
  - Atrioventricular block complete [Unknown]
  - Ejection fraction decreased [Unknown]
  - Rhabdomyolysis [Unknown]
  - Myocarditis [Unknown]
